FAERS Safety Report 8537495-8 (Version None)
Quarter: 2012Q3

REPORT INFORMATION
  Report Type: 
  Country: None (occurrence: None)
  Receive Date: 20120725
  Receipt Date: 20120719
  Transmission Date: 20120928
  Serious: Yes (Hospitalization)
  Sender: FDA-Public Use
  Company Number: AT-BAXTER-2012BAX008400

PATIENT
  Sex: Female

DRUGS (1)
  1. TISSEEL VH [Suspect]
     Indication: TISSUE SEALING
     Route: 061

REACTIONS (1)
  - CEREBROSPINAL FISTULA [None]
